FAERS Safety Report 24005119 (Version 1)
Quarter: 2024Q2

REPORT INFORMATION
  Report Type: Spontaneous
  Country: CN (occurrence: None)
  Receive Date: 20240624
  Receipt Date: 20240624
  Transmission Date: 20240716
  Serious: Yes (Life-Threatening)
  Sender: FDA-Public Use
  Company Number: 2024A144637

PATIENT
  Age: 78 Year
  Sex: Male
  Weight: 70 kg

DRUGS (1)
  1. TICAGRELOR [Suspect]
     Active Substance: TICAGRELOR
     Indication: Platelet aggregation abnormal
     Route: 048
     Dates: start: 20240530, end: 20240604

REACTIONS (5)
  - Dyspnoea [Recovering/Resolving]
  - Chest discomfort [Recovered/Resolved]
  - Tachypnoea [Unknown]
  - Renal failure [Recovering/Resolving]
  - Hyperuricaemia [Recovering/Resolving]

NARRATIVE: CASE EVENT DATE: 20240604
